FAERS Safety Report 6858213-5 (Version None)
Quarter: 2010Q3

REPORT INFORMATION
  Report Type: 
  Country: None (occurrence: None)
  Receive Date: 20100719
  Receipt Date: 20080411
  Transmission Date: 20110219
  Serious: No
  Sender: FDA-Public Use
  Company Number: US-PFIZER INC-2008012486

PATIENT
  Sex: Male
  Weight: 99.8 kg

DRUGS (8)
  1. CHANTIX [Suspect]
     Indication: SMOKING CESSATION THERAPY
     Route: 048
     Dates: start: 20080201
  2. TRAZODONE HYDROCHLORIDE [Concomitant]
     Route: 048
  3. REMERON [Concomitant]
     Route: 048
  4. KLONOPIN [Concomitant]
     Route: 048
  5. SEROQUEL [Concomitant]
     Route: 048
  6. VICODIN [Concomitant]
     Route: 048
  7. FOSAMAX [Concomitant]
     Route: 048
  8. LAMICTAL [Concomitant]
     Route: 048

REACTIONS (3)
  - ABNORMAL DREAMS [None]
  - CHEST PAIN [None]
  - FEELING COLD [None]
